FAERS Safety Report 5487401-8 (Version None)
Quarter: 2007Q4

REPORT INFORMATION
  Report Type: 
  Country: None (occurrence: None)
  Receive Date: 20071016
  Receipt Date: 20071009
  Transmission Date: 20080405
  Serious: Yes (Hospitalization)
  Sender: FDA-Public Use
  Company Number: PH-BOEHRINGER INGELHEIM PHARMACEUTICALS, INC.-2007-BP-22559SG

PATIENT
  Age: 11 Month
  Sex: Male

DRUGS (3)
  1. COMBIVENT [Suspect]
     Indication: ASTHMA
     Dosage: GIVEN 3 TIMES
     Route: 055
     Dates: start: 20071008, end: 20071009
  2. COMBIVENT [Suspect]
     Indication: BRONCHOPNEUMONIA
  3. CEFUROXIME [Concomitant]
     Indication: BRONCHOPNEUMONIA
     Dates: start: 20071008

REACTIONS (3)
  - FLUSHING [None]
  - GENERALISED ERYTHEMA [None]
  - RESTLESSNESS [None]
